FAERS Safety Report 7599870-8 (Version None)
Quarter: 2011Q3

REPORT INFORMATION
  Report Type: 
  Country: None (occurrence: None)
  Receive Date: 20110711
  Receipt Date: 20110705
  Transmission Date: 20111222
  Serious: No
  Sender: FDA-Public Use
  Company Number: US-PFIZER INC-2011151573

PATIENT
  Sex: Female

DRUGS (1)
  1. SUTENT [Suspect]
     Indication: RENAL CANCER
     Dosage: 37.5 MG, 1X/DAY (25MG AND 12.5 MG), FOR 28 DAYS ON THEN 14 DAYS OFF
     Route: 048
     Dates: start: 20110527

REACTIONS (2)
  - DYSGEUSIA [None]
  - ORAL PAIN [None]
